FAERS Safety Report 7223027-3 (Version None)
Quarter: 2011Q1

REPORT INFORMATION
  Report Type: 
  Country: None (occurrence: None)
  Receive Date: 20110112
  Receipt Date: 20110107
  Transmission Date: 20110831
  Serious: Yes (Other)
  Sender: FDA-Public Use
  Company Number: FR-ABBOTT-11P-056-0695969-00

PATIENT
  Age: 68 Year
  Sex: Female

DRUGS (6)
  1. TEDOXIL [Concomitant]
     Indication: BRONCHITIS
     Route: 048
     Dates: start: 20101210, end: 20101218
  2. SYMBICORT [Concomitant]
     Indication: BRONCHITIS
     Route: 048
     Dates: start: 20101210, end: 20101218
  3. MEDROL [Concomitant]
     Indication: BRONCHITIS
     Route: 048
     Dates: start: 20101228, end: 20110103
  4. SOLU-MEDROL [Concomitant]
     Indication: BRONCHITIS
     Route: 048
     Dates: start: 20101210, end: 20101218
  5. ROCEPHIN [Concomitant]
     Indication: BRONCHITIS
     Route: 030
     Dates: start: 20101228, end: 20110103
  6. LIPANTHYL TABLETS [Suspect]
     Indication: HYPERTRIGLYCERIDAEMIA
     Route: 048
     Dates: start: 20100901

REACTIONS (1)
  - DYSPNOEA EXERTIONAL [None]
